FAERS Safety Report 8439154-9 (Version None)
Quarter: 2012Q2

REPORT INFORMATION
  Report Type: 
  Country: None (occurrence: None)
  Receive Date: 20120615
  Receipt Date: 20120612
  Transmission Date: 20120825
  Serious: No
  Sender: FDA-Public Use
  Company Number: US-BAYER-2012-059062

PATIENT
  Age: 46 Year
  Sex: Female
  Weight: 68 kg

DRUGS (2)
  1. ALEVE (CAPLET) [Suspect]
     Indication: ANALGESIC THERAPY
  2. SYNTHROID [Concomitant]

REACTIONS (5)
  - SWELLING FACE [None]
  - RASH [None]
  - NECK PAIN [None]
  - SWELLING [None]
  - ERYTHEMA [None]
